FAERS Safety Report 4984563-3 (Version None)
Quarter: 2006Q2

REPORT INFORMATION
  Report Type: 
  Country: None (occurrence: None)
  Receive Date: 20060421
  Receipt Date: 20060410
  Transmission Date: 20061013
  Serious: No
  Sender: FDA-Public Use
  Company Number: 06H-286-0307322-00

PATIENT

DRUGS (2)
  1. ETOPOSIDE [Suspect]
     Indication: CHEMOTHERAPY
     Dosage: 100 MG/M2, DAYS 1-3, INTRAVENOUS
     Route: 042
  2. CISPLATIN [Suspect]
     Indication: CHEMOTHERAPY
     Dosage: 75 MG/M2, DAY 1, INFUSION

REACTIONS (2)
  - DRUG TOXICITY [None]
  - PULMONARY TOXICITY [None]
